FAERS Safety Report 6425533-8 (Version None)
Quarter: 2009Q4

REPORT INFORMATION
  Report Type: 
  Country: None (occurrence: None)
  Receive Date: 20091103
  Receipt Date: 20091023
  Transmission Date: 20100525
  Serious: Yes (Hospitalization)
  Sender: FDA-Public Use
  Company Number: FR-JNJFOC-20090802172

PATIENT
  Sex: Male

DRUGS (9)
  1. PREZISTA [Suspect]
     Route: 048
  2. PREZISTA [Suspect]
     Indication: HIV INFECTION
     Route: 048
  3. TRUVADA [Suspect]
     Route: 048
  4. TRUVADA [Suspect]
     Indication: HIV INFECTION
     Route: 048
  5. KALETRA [Suspect]
     Indication: HIV INFECTION
     Route: 048
  6. NORVIR [Suspect]
     Route: 048
  7. NORVIR [Suspect]
     Indication: HIV INFECTION
     Route: 048
  8. LAROXYL ROCHE [Concomitant]
     Route: 048
  9. RIVOTRIL [Concomitant]

REACTIONS (2)
  - CONDITION AGGRAVATED [None]
  - JAUNDICE CHOLESTATIC [None]
